FAERS Safety Report 6861042-X (Version None)
Quarter: 2010Q3

REPORT INFORMATION
  Report Type: 
  Country: None (occurrence: None)
  Receive Date: 20100720
  Receipt Date: 20100706
  Transmission Date: 20110219
  Serious: Yes (Hospitalization, Disabling, Other)
  Sender: FDA-Public Use
  Company Number: US-ELI_LILLY_AND_COMPANY-US201007002350

PATIENT
  Sex: Female
  Weight: 49.887 kg

DRUGS (6)
  1. FORTEO [Suspect]
     Indication: OSTEOPOROSIS
     Dosage: 20 UG, DAILY (1/D)
     Dates: end: 20100524
  2. FORTEO [Suspect]
     Dosage: 20 UG, DAILY (1/D)
     Dates: start: 20100530
  3. CALCIUM [Concomitant]
  4. VITAMIN D [Concomitant]
  5. ACIDOPHILUS [Concomitant]
  6. TYLENOL (CAPLET) [Concomitant]
     Dosage: 500 MG, UNK

REACTIONS (15)
  - AGGRESSION [None]
  - BLOOD PRESSURE DECREASED [None]
  - BLOOD PRESSURE INCREASED [None]
  - FEELING ABNORMAL [None]
  - FEELING JITTERY [None]
  - FEMUR FRACTURE [None]
  - HAEMOGLOBIN DECREASED [None]
  - HAEMORRHAGE [None]
  - HIP ARTHROPLASTY [None]
  - IMMOBILE [None]
  - MALAISE [None]
  - NAUSEA [None]
  - PSYCHOMOTOR HYPERACTIVITY [None]
  - VASCULAR INJURY [None]
  - WEIGHT DECREASED [None]
